FAERS Safety Report 9875087 (Version 1)
Quarter: 2014Q1

REPORT INFORMATION
  Report Type: Spontaneous
  Country: US (occurrence: None)
  Receive Date: 20140205
  Receipt Date: 20140205
  Transmission Date: 20141002
  Serious: No
  Sender: FDA-Public Use
  Company Number: None

PATIENT
  Age: 42 Year
  Sex: Female

DRUGS (2)
  1. CIPROFLOXACIN 500MG [Suspect]
     Indication: PYELONEPHRITIS
     Route: 048
     Dates: start: 20111225, end: 20111231
  2. CIPROFLOXACIN 500MG [Suspect]
     Indication: HAEMORRHAGE
     Route: 048
     Dates: start: 20111225, end: 20111231

REACTIONS (2)
  - Sensation of heaviness [None]
  - Tendon pain [None]
